FAERS Safety Report 5166076-1 (Version None)
Quarter: 2006Q4

REPORT INFORMATION
  Report Type: 
  Country: None (occurrence: None)
  Receive Date: 20061128
  Receipt Date: 20061115
  Transmission Date: 20070319
  Serious: Yes (Other)
  Sender: FDA-Public Use
  Company Number: 2006105253

PATIENT
  Sex: Male
  Weight: 113.3993 kg

DRUGS (5)
  1. LIPITOR [Suspect]
     Indication: STENT PLACEMENT
  2. LIPITOR [Suspect]
     Indication: SURGICAL PROCEDURE REPEATED
  3. ALL OTHER THERAPEUTIC PRODUCTS (ALL OTHER THERAPEUTIC PRODUCTS) [Suspect]
     Indication: HYPERTENSION
  4. SYNTHROID [Concomitant]
  5. FISH OIL [Concomitant]

REACTIONS (8)
  - ASTHENIA [None]
  - CHEST PAIN [None]
  - FEELING ABNORMAL [None]
  - HYPOTONIA [None]
  - INFLUENZA [None]
  - MUSCLE ATROPHY [None]
  - MYALGIA [None]
  - PAIN [None]
